FAERS Safety Report 6293170-4 (Version None)
Quarter: 2009Q3

REPORT INFORMATION
  Report Type: 
  Country: None (occurrence: None)
  Receive Date: 20090731
  Receipt Date: 20090727
  Transmission Date: 20100115
  Serious: Yes (Disabling, Other)
  Sender: FDA-Public Use
  Company Number: GB-B.I. PHARMACEUTICALS,INC./RIDGEFIELD-2009-BP-08948YA

PATIENT
  Age: 68 Year
  Sex: Male

DRUGS (3)
  1. TAMSULOSIN [Suspect]
     Route: 048
  2. DOXAZOSIN MESYLATE [Suspect]
     Indication: UROGENITAL DISORDER
     Route: 065
  3. LIPITOR [Suspect]
     Indication: BLOOD CHOLESTEROL INCREASED
     Route: 048

REACTIONS (10)
  - ASTHENIA [None]
  - DRUG INEFFECTIVE [None]
  - DYSPNOEA [None]
  - IMMOBILE [None]
  - MUSCULOSKELETAL PAIN [None]
  - NECK PAIN [None]
  - PAIN [None]
  - PROSTATIC DISORDER [None]
  - RENAL PAIN [None]
  - WEIGHT DECREASED [None]
